FAERS Safety Report 7562040-3 (Version None)
Quarter: 2011Q2

REPORT INFORMATION
  Report Type: 
  Country: None (occurrence: None)
  Receive Date: 20110622
  Receipt Date: 20090112
  Transmission Date: 20111010
  Serious: Yes (Hospitalization)
  Sender: FDA-Public Use
  Company Number: PHHY2009DE68656

PATIENT
  Sex: Female
  Weight: 114 kg

DRUGS (13)
  1. ALLOPURINOL [Concomitant]
     Dosage: 300 OT, UNK
  2. CITALOPRAM HYDROBROMIDE [Concomitant]
     Dosage: 20 MG, QD
  3. METFORMIN HCL [Concomitant]
     Dosage: 1 X EVENINGS
  4. INSULIN [Concomitant]
  5. LANTUS [Concomitant]
     Dosage: 28 IU, 28  IU 0-0-28 IU
  6. SANDOSTATIN LAR [Suspect]
     Indication: NEUROENDOCRINE TUMOUR
     Dosage: 10 MG, UNK
     Route: 030
     Dates: start: 19910101
  7. ENAHEXAL [Concomitant]
     Dosage: 0.5 DF, MORNING
  8. ASPIRIN [Concomitant]
     Dosage: 100 MG, 1-0-0
  9. SANDOSTATIN LAR [Suspect]
     Dosage: 20 MG, UNK
     Route: 030
     Dates: start: 19910101
  10. SIMVASTATIN [Concomitant]
     Dosage: 1 DF, EVENING
  11. LANTUS [Concomitant]
     Dosage: NIGHTTIME 0-0-0-50
  12. BISOPROLOL FUMARATE [Concomitant]
     Dosage: 5 MG, BID
  13. HUMALOG [Concomitant]

REACTIONS (5)
  - OBESITY [None]
  - DIARRHOEA [None]
  - FATIGUE [None]
  - NAUSEA [None]
  - CEREBROVASCULAR ACCIDENT [None]
